FAERS Safety Report 22383560 (Version 1)
Quarter: 2023Q2

REPORT INFORMATION
  Report Type: Spontaneous
  Country: ES (occurrence: ES)
  Receive Date: 20230530
  Receipt Date: 20230530
  Transmission Date: 20230722
  Serious: Yes (Life-Threatening, Hospitalization)
  Sender: FDA-Public Use
  Company Number: ES-JNJFOC-20230567302

PATIENT
  Age: 31 Year
  Sex: Male

DRUGS (1)
  1. IBUPROFEN [Suspect]
     Active Substance: IBUPROFEN
     Indication: Product used for unknown indication
     Route: 065
     Dates: start: 20140418

REACTIONS (1)
  - Acute generalised exanthematous pustulosis [Not Recovered/Not Resolved]

NARRATIVE: CASE EVENT DATE: 20140418
